FAERS Safety Report 6221704-4 (Version None)
Quarter: 2009Q2

REPORT INFORMATION
  Report Type: 
  Country: None (occurrence: None)
  Receive Date: 20090608
  Receipt Date: 20090521
  Transmission Date: 20091009
  Serious: Yes (Other)
  Sender: FDA-Public Use
  Company Number: 8046746

PATIENT
  Age: 18 Year
  Sex: Female
  Weight: 60.78 kg

DRUGS (3)
  1. KEPPRA [Suspect]
     Indication: COMPLEX PARTIAL SEIZURES
     Dosage: 500 MG 2/D PO
     Route: 048
     Dates: end: 20090303
  2. FOLATE [Concomitant]
  3. VITAMIN TAB [Concomitant]

REACTIONS (5)
  - ABORTION INDUCED [None]
  - ACUTE PSYCHOSIS [None]
  - DRUG EXPOSURE DURING PREGNANCY [None]
  - HALLUCINATIONS, MIXED [None]
  - NIGHTMARE [None]
